FAERS Safety Report 21240661 (Version 4)
Quarter: 2023Q1

REPORT INFORMATION
  Report Type: Spontaneous
  Country: US (occurrence: US)
  Receive Date: 20220823
  Receipt Date: 20230102
  Transmission Date: 20230417
  Serious: Yes (Other)
  Sender: FDA-Public Use
  Company Number: US-BEH-2022148676

PATIENT
  Sex: Male

DRUGS (4)
  1. IDELVION [Suspect]
     Active Substance: COAGULATION FACTOR IX RECOMBINANT HUMAN
     Indication: Factor IX deficiency
     Dosage: 1846 INTERNATIONAL UNIT, QW
     Route: 042
     Dates: start: 20201111
  2. IDELVION [Suspect]
     Active Substance: COAGULATION FACTOR IX RECOMBINANT HUMAN
     Indication: Factor IX deficiency
     Dosage: 1846 INTERNATIONAL UNIT, QW
     Route: 042
     Dates: start: 20201111
  3. IDELVION [Suspect]
     Active Substance: COAGULATION FACTOR IX RECOMBINANT HUMAN
     Indication: Prophylaxis
     Dosage: 1092 INTERNATIONAL UNIT, QW
     Route: 042
     Dates: start: 20221104
  4. IDELVION [Suspect]
     Active Substance: COAGULATION FACTOR IX RECOMBINANT HUMAN
     Indication: Prophylaxis
     Dosage: 1092 INTERNATIONAL UNIT, QW
     Route: 042
     Dates: start: 20221104

REACTIONS (3)
  - Gingival bleeding [Unknown]
  - Joint injury [Unknown]
  - Traumatic haemorrhage [Recovered/Resolved]
